FAERS Safety Report 9970190 (Version 2)
Quarter: 2014Q1

REPORT INFORMATION
  Report Type: Report from Study
  Country: US (occurrence: US)
  Receive Date: 20140306
  Receipt Date: 20140306
  Transmission Date: 20141002
  Serious: Yes (Other)
  Sender: FDA-Public Use
  Company Number: US-ROCHE-1288983

PATIENT
  Sex: 0

DRUGS (5)
  1. VEMURAFENIB [Suspect]
     Indication: MALIGNANT MELANOMA
     Route: 048
     Dates: start: 20130512, end: 20130924
  2. VEMURAFENIB [Suspect]
     Dosage: SECOND CYCLE
     Route: 048
     Dates: start: 20130924
  3. BEVACIZUMAB [Suspect]
     Indication: MALIGNANT MELANOMA
     Route: 042
     Dates: start: 20130512, end: 20130924
  4. BEVACIZUMAB [Suspect]
     Dosage: SECOND CYCLE
     Route: 042
     Dates: start: 20130924
  5. NORVASC [Concomitant]
     Indication: HYPERTENSION

REACTIONS (1)
  - Hypertension [Recovered/Resolved]
